FAERS Safety Report 9629475 (Version 2)
Quarter: 2013Q4

REPORT INFORMATION
  Report Type: Spontaneous
  Country: BR (occurrence: BR)
  Receive Date: 20131017
  Receipt Date: 20131021
  Transmission Date: 20140711
  Serious: Yes (Other)
  Sender: FDA-Public Use
  Company Number: BR-PFIZER INC-2013290831

PATIENT
  Age: 77 Year
  Sex: Female

DRUGS (1)
  1. XALATAN [Suspect]
     Dosage: 1.5 UG (1 DROP IN RIGHT EYE), UNK
     Route: 047
     Dates: start: 2009

REACTIONS (2)
  - Eye disorder [Unknown]
  - Eye prosthesis user [Unknown]
